FAERS Safety Report 21454758 (Version 1)
Quarter: 2022Q4

REPORT INFORMATION
  Report Type: Spontaneous
  Country: EG (occurrence: EG)
  Receive Date: 20221014
  Receipt Date: 20221014
  Transmission Date: 20230113
  Serious: Yes (Other)
  Sender: FDA-Public Use
  Company Number: EG-009507513-2210EGY003402

PATIENT

DRUGS (7)
  1. TEMODAL [Suspect]
     Active Substance: TEMOZOLOMIDE
     Indication: Lymphoma
     Dosage: UNK
     Route: 048
  2. NITROMACK [Concomitant]
     Dosage: TWICE DAILY
     Route: 048
  3. VASTAREL [Concomitant]
     Active Substance: TRIMETAZIDINE DIHYDROCHLORIDE
     Dosage: TWICE DAILY
     Route: 048
  4. PLAVIX [Concomitant]
     Active Substance: CLOPIDOGREL BISULFATE
     Dosage: ONCE DAILY AFTER DINNER BY 1 HR
     Route: 048
  5. FAMOTIN [Concomitant]
     Dosage: ONCE DAILY AFTER DINNER
     Route: 048
  6. VALSARTAN [Concomitant]
     Active Substance: VALSARTAN
     Dosage: ONCE DAILY BEFORE DINNER
     Route: 048
  7. ROYAL VIT G. [Concomitant]
     Dosage: ONCE DAILY AFTER BREAKFAST
     Route: 048

REACTIONS (3)
  - Intestinal metastasis [Unknown]
  - Metastases to stomach [Unknown]
  - Product use in unapproved indication [Unknown]
